FAERS Safety Report 5644423-1 (Version None)
Quarter: 2008Q1

REPORT INFORMATION
  Report Type: 
  Country: None (occurrence: None)
  Receive Date: 20080229
  Receipt Date: 20080220
  Transmission Date: 20080703
  Serious: Yes (Hospitalization)
  Sender: FDA-Public Use
  Company Number: CA-ELI_LILLY_AND_COMPANY-CA200802001225

PATIENT
  Sex: Male

DRUGS (15)
  1. HUMULIN N [Suspect]
     Dosage: 20 U, AT BEDTIME
     Route: 058
  2. HUMULIN R [Suspect]
     Dosage: 12 U, BEFORE MEALS
     Route: 058
  3. AMITRIPTYLINE HCL [Concomitant]
     Indication: DEPRESSION
     Dosage: 25 MG, BEDTIME
     Route: 048
  4. OS-CAL [Concomitant]
     Indication: MINERAL SUPPLEMENTATION
     Dosage: 500 MG, 2/D
     Route: 048
  5. CLONAZEPAM [Concomitant]
     Indication: ANXIETY
     Dosage: 0.5 MG, 2/D
     Route: 048
  6. DOCUSATE SODIUM [Concomitant]
     Indication: CONSTIPATION
     Dosage: 200 MG, 2/D
     Route: 048
  7. METOPROLOL TARTRATE [Concomitant]
     Indication: HYPERTENSION
     Dosage: 25 MG, 2/D
     Route: 048
  8. NOZINAN [Concomitant]
     Indication: INSOMNIA
     Dosage: 25 MG, BEDTIME
     Route: 048
  9. PAXIL [Concomitant]
     Indication: DEPRESSION
     Route: 048
  10. PLENDIL [Concomitant]
     Indication: HYPERTENSION
     Dosage: 2.5 MG, DAILY (1/D)
     Route: 048
  11. PROCYCLIDINE HYDROCHLORIDE 2MG TAB [Concomitant]
     Indication: EXTRAPYRAMIDAL DISORDER
     Dosage: 5 MG, 3/D
     Route: 048
  12. FLUPENTIXOL [Concomitant]
     Indication: SCHIZOPHRENIA
     Dosage: 6 MG, 3/D
     Route: 048
  13. FENOFIBRATE [Concomitant]
     Indication: BLOOD CHOLESTEROL
     Dosage: 200 MG, DAILY (1/D)
     Route: 048
  14. RANITIDINE [Concomitant]
     Indication: GASTROOESOPHAGEAL REFLUX DISEASE
     Dosage: 180 UNK, 2/D
  15. ACCUPRIL [Concomitant]
     Indication: HYPERTENSION
     Dosage: 40 UNK, DAILY (1/D)

REACTIONS (3)
  - INFLUENZA [None]
  - PNEUMONIA [None]
  - RESPIRATORY TRACT INFECTION [None]
